FAERS Safety Report 4474175-2 (Version None)
Quarter: 2004Q4

REPORT INFORMATION
  Report Type: 
  Country: None (occurrence: None)
  Receive Date: 20041008
  Receipt Date: 20040924
  Transmission Date: 20050328
  Serious: Yes (Hospitalization)
  Sender: FDA-Public Use
  Company Number: 2004-BP-08723BP

PATIENT
  Age: 18 Month
  Sex: Male

DRUGS (3)
  1. ATROVENT [Suspect]
     Dosage: STRENGTH:  500 MG IN 2.5 ML (SEE TEXT), IH
     Route: 055
     Dates: start: 20040819, end: 20040820
  2. PULMICORT [Concomitant]
  3. SINGULAIR [Concomitant]

REACTIONS (1)
  - PCO2 INCREASED [None]
